FAERS Safety Report 8178194-4 (Version None)
Quarter: 2012Q1

REPORT INFORMATION
  Report Type: 
  Country: None (occurrence: None)
  Receive Date: 20120301
  Receipt Date: 20120227
  Transmission Date: 20120608
  Serious: Yes (Death)
  Sender: FDA-Public Use
  Company Number: CHPA2012US003663

PATIENT
  Age: 17 Year
  Sex: Female

DRUGS (1)
  1. ACETAMINOPHEN, DIPHENHYDRAMINE CITRATE [Suspect]
     Dosage: UNK, UNK
     Route: 048

REACTIONS (22)
  - TOXICITY TO VARIOUS AGENTS [None]
  - MYDRIASIS [None]
  - HYPERTHERMIA [None]
  - DRY SKIN [None]
  - PUPILS UNEQUAL [None]
  - HYPOXIC-ISCHAEMIC ENCEPHALOPATHY [None]
  - HYPOTENSION [None]
  - PUPILLARY LIGHT REFLEX TESTS ABNORMAL [None]
  - BODY TEMPERATURE INCREASED [None]
  - DYSARTHRIA [None]
  - CONVULSION [None]
  - FIBRIN D DIMER INCREASED [None]
  - NEUROLOGICAL DECOMPENSATION [None]
  - ASPARTATE AMINOTRANSFERASE INCREASED [None]
  - INTENTIONAL DRUG MISUSE [None]
  - ERYTHEMA [None]
  - BRAIN HERNIATION [None]
  - DELIRIUM [None]
  - UNRESPONSIVE TO STIMULI [None]
  - ATELECTASIS [None]
  - ALANINE AMINOTRANSFERASE INCREASED [None]
  - PARALYSIS [None]
